FAERS Safety Report 10065234 (Version 1)
Quarter: 2014Q2

REPORT INFORMATION
  Report Type: Spontaneous
  Country: PE (occurrence: PE)
  Receive Date: 20140408
  Receipt Date: 20140408
  Transmission Date: 20141212
  Serious: Yes (Other)
  Sender: FDA-Public Use
  Company Number: PE-PFIZER INC-2014097968

PATIENT
  Age: 15 Year
  Sex: Female

DRUGS (2)
  1. ZOLOFT [Suspect]
     Dosage: UNK
     Route: 048
     Dates: end: 201403
  2. ZOLOFT [Suspect]
     Dosage: UNK
     Route: 048
     Dates: start: 20140321

REACTIONS (1)
  - Neoplasm [Recovered/Resolved]
